FAERS Safety Report 4617425-1 (Version None)
Quarter: 2005Q1

REPORT INFORMATION
  Report Type: 
  Country: None (occurrence: None)
  Receive Date: 20050324
  Receipt Date: 20050313
  Transmission Date: 20050727
  Serious: Yes (Other)
  Sender: FDA-Public Use
  Company Number: DE-JNJFOC-20050205622

PATIENT
  Age: 80 Year
  Sex: Male
  Weight: 80 kg

DRUGS (1)
  1. REMICADE [Suspect]
     Indication: RHEUMATOID ARTHRITIS
     Dosage: DURATION OF TWO YEARS
     Route: 042

REACTIONS (6)
  - DEMYELINATION [None]
  - FAECAL INCONTINENCE [None]
  - MYOCARDIAL INFARCTION [None]
  - PARALYSIS [None]
  - QUADRIPARESIS [None]
  - URINARY INCONTINENCE [None]
